FAERS Safety Report 7617835-4 (Version None)
Quarter: 2011Q3

REPORT INFORMATION
  Report Type: 
  Country: None (occurrence: None)
  Receive Date: 20110718
  Receipt Date: 20110705
  Transmission Date: 20111222
  Serious: Yes (Other)
  Sender: FDA-Public Use
  Company Number: US-ELI_LILLY_AND_COMPANY-US201106004762

PATIENT
  Sex: Female
  Weight: 107.3 kg

DRUGS (2)
  1. ZYPREXA [Concomitant]
     Dosage: 15 MG, UNK
     Dates: start: 20110608
  2. OLANZAPINE [Suspect]
     Indication: SCHIZOAFFECTIVE DISORDER
     Dosage: 300 MG, UNK
     Dates: start: 20110610

REACTIONS (8)
  - DIZZINESS [None]
  - DEPRESSED LEVEL OF CONSCIOUSNESS [None]
  - SEDATION [None]
  - HYPERTENSION [None]
  - HYPOTENSION [None]
  - TACHYCARDIA [None]
  - DYSPHAGIA [None]
  - CHEST PAIN [None]
